FAERS Safety Report 22330823 (Version 1)
Quarter: 2023Q2

REPORT INFORMATION
  Report Type: Spontaneous
  Country: US (occurrence: US)
  Receive Date: 20230517
  Receipt Date: 20230517
  Transmission Date: 20230721
  Serious: No
  Sender: FDA-Public Use
  Company Number: US-EPICPHARMA-US-2023EPCSPO00815

PATIENT
  Sex: Male
  Weight: 270 kg

DRUGS (8)
  1. FUROSEMIDE [Suspect]
     Active Substance: FUROSEMIDE
     Indication: Psoriasis
     Route: 048
  2. TRIAMCINOLONE [Concomitant]
     Active Substance: TRIAMCINOLONE
     Indication: Psoriasis
     Route: 061
  3. LISINOPRIL [Concomitant]
     Active Substance: LISINOPRIL
     Indication: Psoriasis
     Route: 048
  4. VENTOLIN HFA [Concomitant]
     Active Substance: ALBUTEROL SULFATE
     Indication: Psoriasis
     Dosage: 90 MICROGRAM
     Route: 065
  5. CARVEDILOL [Concomitant]
     Active Substance: CARVEDILOL
     Indication: Psoriasis
     Route: 048
  6. DULOXETINE [Concomitant]
     Active Substance: DULOXETINE
     Indication: Psoriasis
     Route: 048
  7. SPIRONOLACTONE [Concomitant]
     Active Substance: SPIRONOLACTONE
     Indication: Psoriasis
     Route: 048
  8. DIGOXIN [Concomitant]
     Active Substance: DIGOXIN
     Indication: Psoriasis
     Dosage: 125 MICROGRAM
     Route: 048

REACTIONS (1)
  - Product use in unapproved indication [Unknown]
